FAERS Safety Report 14381726 (Version 1)
Quarter: 2018Q1

REPORT INFORMATION
  Report Type: Other
  Country: US (occurrence: US)
  Receive Date: 20180112
  Receipt Date: 20180112
  Transmission Date: 20180509
  Serious: Yes (Death)
  Sender: FDA-Public Use
  Company Number: US-GENUS_LIFESCIENCES-USA-POI0580201800070

PATIENT
  Age: 55 Year
  Sex: Female

DRUGS (17)
  1. CYCLOBENZAPRINE. [Suspect]
     Active Substance: CYCLOBENZAPRINE
     Dates: end: 2016
  2. TRAMADOL. [Suspect]
     Active Substance: TRAMADOL
     Dates: end: 2016
  3. RISPERIDONE. [Suspect]
     Active Substance: RISPERIDONE
     Dates: end: 2016
  4. LEVOLET (LEVOTHYROXINE) [Suspect]
     Active Substance: LEVOTHYROXINE
     Dates: end: 2016
  5. INSULIN [Suspect]
     Active Substance: INSULIN NOS
     Dates: end: 2016
  6. DIAZEPAM. [Suspect]
     Active Substance: DIAZEPAM
     Dates: end: 2016
  7. LAMOTRIGINE. [Suspect]
     Active Substance: LAMOTRIGINE
     Dates: end: 2016
  8. FUROSEMIDE. [Suspect]
     Active Substance: FUROSEMIDE
     Dates: end: 2016
  9. METFORMIN [Suspect]
     Active Substance: METFORMIN HYDROCHLORIDE
     Dates: end: 2016
  10. TRAZODONE [Suspect]
     Active Substance: TRAZODONE HYDROCHLORIDE
     Dates: end: 2016
  11. BUPROPION. [Suspect]
     Active Substance: BUPROPION
     Dates: end: 2016
  12. SPIRONOLACTONE. [Suspect]
     Active Substance: SPIRONOLACTONE
     Dates: end: 2016
  13. ACETAMINOPHEN WITH OXYCODONE [Suspect]
     Active Substance: ACETAMINOPHEN\OXYCODONE HYDROCHLORIDE
     Dates: end: 2016
  14. MIRTAZAPINE. [Suspect]
     Active Substance: MIRTAZAPINE
     Dates: end: 2016
  15. RIVAROXABAN [Suspect]
     Active Substance: RIVAROXABAN
     Dates: end: 2016
  16. EZETIMIBE. [Suspect]
     Active Substance: EZETIMIBE
     Dates: end: 2016
  17. PAROXETINE. [Suspect]
     Active Substance: PAROXETINE
     Dates: end: 2016

REACTIONS (3)
  - Cardiac arrest [Fatal]
  - Respiratory arrest [Fatal]
  - Completed suicide [Fatal]

NARRATIVE: CASE EVENT DATE: 2016
